FAERS Safety Report 13310135 (Version 1)
Quarter: 2017Q1

REPORT INFORMATION
  Report Type: Spontaneous
  Country: US (occurrence: US)
  Receive Date: 20170308
  Receipt Date: 20170308
  Transmission Date: 20170428
  Serious: No
  Sender: FDA-Public Use
  Company Number: None

PATIENT
  Age: 47 Year
  Sex: Female

DRUGS (1)
  1. GILENYA [Suspect]
     Active Substance: FINGOLIMOD HYDROCHLORIDE
     Indication: MULTIPLE SCLEROSIS
     Route: 048
     Dates: start: 20160819, end: 20170120

REACTIONS (4)
  - Pain [None]
  - Chest pain [None]
  - Oropharyngeal pain [None]
  - Visual impairment [None]

NARRATIVE: CASE EVENT DATE: 20170120
